FAERS Safety Report 6460437-6 (Version None)
Quarter: 2009Q4

REPORT INFORMATION
  Report Type: 
  Country: None (occurrence: None)
  Receive Date: 20091130
  Receipt Date: 20091116
  Transmission Date: 20100525
  Serious: Yes (Hospitalization)
  Sender: FDA-Public Use
  Company Number: CH-ROCHE-669211

PATIENT
  Age: 61 Year
  Sex: Male
  Weight: 40 kg

DRUGS (12)
  1. INVIRASE [Suspect]
     Route: 048
     Dates: start: 20060808
  2. VIREAD [Suspect]
     Route: 048
     Dates: start: 20060808, end: 20070704
  3. TRUVADA [Interacting]
     Route: 048
     Dates: start: 20070704, end: 20090930
  4. REYATAZ [Suspect]
     Route: 048
     Dates: start: 20060808
  5. NORVIR [Interacting]
     Route: 048
     Dates: start: 20060808
  6. 3TC [Suspect]
     Route: 048
     Dates: start: 20060101, end: 20070704
  7. 3TC [Suspect]
     Route: 048
     Dates: start: 20091001
  8. ZIAGEN [Suspect]
     Route: 065
     Dates: start: 20091001, end: 20091010
  9. STOCRIN [Suspect]
     Route: 048
     Dates: start: 20091012
  10. STOCRIN [Suspect]
     Route: 048
  11. PHOSPHA 250 NEUTRAL [Concomitant]
     Indication: PHOSPHORUS METABOLISM DISORDER
     Route: 048
     Dates: start: 20090928
  12. POTASSIUM TABLETS, EFFERVESCENT [Concomitant]
     Indication: HYPOKALAEMIA
     Route: 048

REACTIONS (7)
  - FANCONI SYNDROME [None]
  - GLYCOSURIA [None]
  - HYPOKALAEMIA [None]
  - HYPOPHOSPHATAEMIA [None]
  - NEPHROCALCINOSIS [None]
  - PROTEINURIA [None]
  - RENAL FAILURE CHRONIC [None]
